FAERS Safety Report 6139024-5 (Version None)
Quarter: 2009Q1

REPORT INFORMATION
  Report Type: 
  Country: None (occurrence: None)
  Receive Date: 20090327
  Receipt Date: 20090305
  Transmission Date: 20090719
  Serious: Yes (Other)
  Sender: FDA-Public Use
  Company Number: 2009S1004056

PATIENT
  Age: 3 Year

DRUGS (12)
  1. CIMETIDINE [Suspect]
     Indication: DRUG USE FOR UNKNOWN INDICATION
  2. EPINEPHRINE [Suspect]
     Indication: DRUG USE FOR UNKNOWN INDICATION
  3. ALIMEMAZINE (ALIMEMAZINE) [Suspect]
     Indication: DRUG USE FOR UNKNOWN INDICATION
  4. CHLORPHENIRAMINE MALEATE [Suspect]
     Indication: DRUG USE FOR UNKNOWN INDICATION
  5. CETIRIZINE [Suspect]
     Indication: DRUG USE FOR UNKNOWN INDICATION
  6. DISODIUM CROMOGLYCATE (CROMOGLICATE SODIUM) [Suspect]
     Indication: DRUG USE FOR UNKNOWN INDICATION
  7. KETOTIFEN (KETOTIFEN) [Suspect]
     Indication: DRUG USE FOR UNKNOWN INDICATION
  8. HYDROCORTISONE [Concomitant]
  9. MIDAZOLAM HCL [Concomitant]
  10. PARACETAMOL [Concomitant]
  11. PROPOFOL [Concomitant]
  12. REMIFENTANIL [Concomitant]

REACTIONS (3)
  - DIARRHOEA [None]
  - FLUSHING [None]
  - HYPOTONIA [None]
